FAERS Safety Report 6293440-X (Version None)
Quarter: 2009Q3

REPORT INFORMATION
  Report Type: 
  Country: None (occurrence: None)
  Receive Date: 20090803
  Receipt Date: 20090724
  Transmission Date: 20100115
  Serious: Yes (Other)
  Sender: FDA-Public Use
  Company Number: US-BIOGENIDEC-2009BI021126

PATIENT
  Age: 31 Year
  Sex: Female

DRUGS (1)
  1. TYSABRI [Suspect]
     Indication: MULTIPLE SCLEROSIS
     Route: 042
     Dates: start: 20090506, end: 20090724

REACTIONS (7)
  - ANTIBODY TEST POSITIVE [None]
  - ANXIETY [None]
  - CONVULSION [None]
  - HYPERVENTILATION [None]
  - LIP DISCOLOURATION [None]
  - NAUSEA [None]
  - PALLOR [None]
